FAERS Safety Report 14174578 (Version 2)
Quarter: 2017Q4

REPORT INFORMATION
  Report Type: Spontaneous
  Country: ZA (occurrence: ZA)
  Receive Date: 20171109
  Receipt Date: 20171120
  Transmission Date: 20180321
  Serious: Yes (Hospitalization, Other)
  Sender: FDA-Public Use
  Company Number: ZA-PFIZER INC-2017480822

PATIENT
  Age: 60 Year
  Sex: Male

DRUGS (6)
  1. SYMBICORD [Concomitant]
     Active Substance: BUDESONIDE\FORMOTEROL
     Indication: ASTHMA
     Dosage: 120 UG, UNK
     Route: 055
     Dates: start: 20171024
  2. SYMBICORD [Concomitant]
     Active Substance: BUDESONIDE\FORMOTEROL
     Dosage: 160 UG, UNK
     Route: 055
     Dates: start: 20171024
  3. ASPAVOR [Suspect]
     Active Substance: ATORVASTATIN
     Dosage: UNK
  4. PYROCAPS [Concomitant]
     Indication: PAIN
     Dosage: UNK
     Route: 048
  5. FORVENT [Concomitant]
     Active Substance: TIOTROPIUM BROMIDE
     Indication: ASTHMA
     Dosage: 18 UG, UNK
     Route: 055
     Dates: start: 20171024
  6. PREXUM [Suspect]
     Active Substance: PERINDOPRIL ERBUMINE
     Dosage: 5 MG, UNK

REACTIONS (4)
  - Blood pressure inadequately controlled [Recovered/Resolved]
  - Dyspnoea [Not Recovered/Not Resolved]
  - Oxygen saturation decreased [Not Recovered/Not Resolved]
  - Headache [Not Recovered/Not Resolved]

NARRATIVE: CASE EVENT DATE: 2017
